FAERS Safety Report 20607096 (Version 1)
Quarter: 2022Q1

REPORT INFORMATION
  Report Type: Spontaneous
  Country: ES (occurrence: ES)
  Receive Date: 20220317
  Receipt Date: 20220317
  Transmission Date: 20220423
  Serious: Yes (Other)
  Sender: FDA-Public Use
  Company Number: ES-PFIZER INC-202200380485

PATIENT
  Age: 80 Year
  Sex: Male

DRUGS (1)
  1. XALATAN [Suspect]
     Active Substance: LATANOPROST
     Indication: Intraocular pressure increased

REACTIONS (11)
  - Blindness [Unknown]
  - Eye injury [Unknown]
  - Retinitis [Unknown]
  - Eye pain [Unknown]
  - Eye pruritus [Unknown]
  - Visual impairment [Unknown]
  - Eye opacity [Unknown]
  - Dyschromatopsia [Unknown]
  - Eye discharge [Unknown]
  - Photophobia [Unknown]
  - Abnormal sensation in eye [Unknown]
